FAERS Safety Report 20778849 (Version 2)
Quarter: 2022Q2

REPORT INFORMATION
  Report Type: Spontaneous
  Country: US (occurrence: US)
  Receive Date: 20220503
  Receipt Date: 20220510
  Transmission Date: 20220720
  Serious: No
  Sender: FDA-Public Use
  Company Number: US-PFIZER INC-202200639355

PATIENT
  Age: 67 Year
  Sex: Male

DRUGS (1)
  1. DEPO-TESTOSTERONE [Suspect]
     Active Substance: TESTOSTERONE CYPIONATE
     Dosage: UNK (100MG/ML AND 200MG/ML)

REACTIONS (6)
  - Intentional product misuse [Unknown]
  - Haematocrit increased [Recovered/Resolved]
  - Blood testosterone increased [Recovering/Resolving]
  - Feeling abnormal [Unknown]
  - Feeling hot [Unknown]
  - Erythema [Unknown]
